FAERS Safety Report 8341483-4 (Version None)
Quarter: 2012Q2

REPORT INFORMATION
  Report Type: 
  Country: None (occurrence: None)
  Receive Date: 20120507
  Receipt Date: 20100118
  Transmission Date: 20120825
  Serious: No
  Sender: FDA-Public Use
  Company Number: US-TEVA-2010000232

PATIENT
  Sex: Female
  Weight: 88.076 kg

DRUGS (8)
  1. ZOFRAN [Concomitant]
  2. RITUXAN [Suspect]
     Route: 042
     Dates: start: 20091201
  3. VITAMIN D [Concomitant]
  4. LEVOTHYROXINE SODIUM [Concomitant]
     Indication: BASEDOW'S DISEASE
  5. VALACICLOVIR [Concomitant]
  6. AMLODIPINE [Concomitant]
     Indication: HYPERTENSION
  7. TREANDA [Suspect]
     Indication: CHRONIC LYMPHOCYTIC LEUKAEMIA
     Route: 042
     Dates: start: 20091201
  8. BACTRIM DS [Concomitant]

REACTIONS (1)
  - CHILLS [None]
